FAERS Safety Report 24296972 (Version 1)
Quarter: 2024Q3

REPORT INFORMATION
  Report Type: Spontaneous
  Country: CN (occurrence: CN)
  Receive Date: 20240909
  Receipt Date: 20240909
  Transmission Date: 20241017
  Serious: Yes (Other)
  Sender: DR REDDYS
  Company Number: CN-RDY-SPO/CHN/24/0012992

PATIENT
  Age: 53 Year
  Sex: Male

DRUGS (8)
  1. LENALIDOMIDE [Suspect]
     Active Substance: LENALIDOMIDE
     Indication: Natural killer-cell lymphoblastic lymphoma
     Dosage: 2 CYCLES
  2. TISLELIZUMAB [Concomitant]
     Active Substance: TISLELIZUMAB
     Indication: Natural killer-cell lymphoblastic lymphoma
     Dosage: 2 CYCLES
  3. TISLELIZUMAB [Concomitant]
     Active Substance: TISLELIZUMAB
     Dosage: 4 CYCLES
  4. TEMOZOLOMIDE [Concomitant]
     Active Substance: TEMOZOLOMIDE
     Indication: Natural killer-cell lymphoblastic lymphoma
     Dosage: 2 CYCLES
  5. BRENTUXIMAB VEDOTIN [Concomitant]
     Active Substance: BRENTUXIMAB VEDOTIN
     Indication: Natural killer-cell lymphoblastic lymphoma
     Dosage: 4 CYCLES
  6. TUCIDINOSTAT [Concomitant]
     Active Substance: TUCIDINOSTAT
     Indication: Natural killer-cell lymphoblastic lymphoma
  7. METHOTREXATE [Concomitant]
     Active Substance: METHOTREXATE
     Indication: Natural killer-cell lymphoblastic lymphoma
     Dosage: HIGH-DOSE
  8. PEMETREXED [Concomitant]
     Active Substance: PEMETREXED
     Indication: Natural killer-cell lymphoblastic lymphoma

REACTIONS (2)
  - Malignant neoplasm progression [Unknown]
  - Drug ineffective for unapproved indication [Unknown]
